FAERS Safety Report 7877762-4 (Version None)
Quarter: 2011Q4

REPORT INFORMATION
  Report Type: 
  Country: None (occurrence: None)
  Receive Date: 20111031
  Receipt Date: 20111031
  Transmission Date: 20120403
  Serious: Yes (Hospitalization)
  Sender: FDA-Public Use
  Company Number: None

PATIENT
  Age: 53 Year
  Sex: Male
  Weight: 81 kg

DRUGS (1)
  1. AMPICILLIN [Suspect]

REACTIONS (3)
  - RASH [None]
  - DYSPNOEA [None]
  - HYPOXIA [None]
